FAERS Safety Report 8223938-6 (Version None)
Quarter: 2012Q1

REPORT INFORMATION
  Report Type: 
  Country: None (occurrence: None)
  Receive Date: 20120321
  Receipt Date: 20120315
  Transmission Date: 20120608
  Serious: Yes (Hospitalization)
  Sender: FDA-Public Use
  Company Number: US-PFIZER INC-2012069891

PATIENT
  Sex: Female

DRUGS (1)
  1. SUTENT [Suspect]
     Indication: METASTATIC RENAL CELL CARCINOMA
     Dosage: 50 MG, 1X/DAY (1 CAPSULE DAILY)
     Dates: start: 20120112

REACTIONS (7)
  - CANDIDIASIS [None]
  - DEHYDRATION [None]
  - VOMITING [None]
  - ANAEMIA [None]
  - SKIN REACTION [None]
  - ORAL PAIN [None]
  - DYSURIA [None]
